FAERS Safety Report 24231696 (Version 1)
Quarter: 2024Q3

REPORT INFORMATION
  Report Type: Spontaneous
  Country: ES (occurrence: ES)
  Receive Date: 20240821
  Receipt Date: 20240821
  Transmission Date: 20241016
  Serious: Yes (Other)
  Sender: AUROBINDO
  Company Number: ES-AEMPS-1559045

PATIENT
  Age: 81 Year
  Sex: Male

DRUGS (10)
  1. DONEPEZIL [Suspect]
     Active Substance: DONEPEZIL\DONEPEZIL HYDROCHLORIDE
     Indication: Dementia Alzheimer^s type
     Dosage: UNK
     Route: 048
     Dates: start: 20240702, end: 20240803
  2. CARBIDOPA\LEVODOPA [Concomitant]
     Active Substance: CARBIDOPA\LEVODOPA
     Indication: Parkinson^s disease
     Dosage: UNK (1.0 COMP DECOCE)
     Route: 048
     Dates: start: 20230901
  3. DUTASTERIDE\TAMSULOSIN [Concomitant]
     Active Substance: DUTASTERIDE\TAMSULOSIN
     Indication: Benign prostatic hyperplasia
     Dosage: 1 DOSAGE FORM (1.0 CAPS D-DE)
     Route: 048
     Dates: start: 20141004
  4. GINKGO [Concomitant]
     Active Substance: GINKGO
     Indication: Spinal meningioma benign
     Dosage: 240 MILLIGRAM (240.0 MG DE)
     Route: 048
     Dates: start: 20230624
  5. BISOPROLOL FUMARATE [Concomitant]
     Active Substance: BISOPROLOL FUMARATE
     Indication: Essential hypertension
     Dosage: 1.25 MILLIGRAM (1.25 MG DE)
     Route: 048
     Dates: start: 20220728
  6. OMEPRAZOLE [Concomitant]
     Active Substance: OMEPRAZOLE
     Indication: Cholelithiasis
     Dosage: 20 MILLIGRAM (20.0 MG C/24 H)
     Route: 048
     Dates: start: 20080710
  7. TORSEMIDE [Concomitant]
     Active Substance: TORSEMIDE
     Indication: Essential hypertension
     Dosage: 5 MILLIGRAM (5.0 MG DE)
     Route: 048
     Dates: start: 20230929
  8. LORAZEPAM [Concomitant]
     Active Substance: LORAZEPAM
     Indication: Product used for unknown indication
     Dosage: 0.5 MG C/24 H NOC
     Route: 048
     Dates: start: 20080709
  9. ENALAPRIL [Concomitant]
     Active Substance: ENALAPRIL
     Indication: Essential hypertension
     Dosage: 10.0 MG CE
     Route: 048
     Dates: start: 20230928
  10. KETOCONAZOL SANDOZ 20 MG/G GEL EFG , 1 frasco de 100 ml [Concomitant]
     Indication: Actinic keratosis
     Dosage: 1.0 APLIC C/24 H
     Dates: start: 20110518

REACTIONS (5)
  - Disorientation [Recovering/Resolving]
  - Dizziness [Recovering/Resolving]
  - Decreased appetite [Recovering/Resolving]
  - Syncope [Recovering/Resolving]
  - Vomiting [Recovering/Resolving]

NARRATIVE: CASE EVENT DATE: 20240702
